FAERS Safety Report 10074373 (Version 1)
Quarter: 2014Q2

REPORT INFORMATION
  Report Type: Spontaneous
  Country: US (occurrence: US)
  Receive Date: 20140411
  Receipt Date: 20140411
  Transmission Date: 20141212
  Serious: No
  Sender: FDA-Public Use
  Company Number: US-SANOFI-AVENTIS-2013SA064869

PATIENT
  Age: 43 Year
  Sex: Female
  Weight: 61.23 kg

DRUGS (2)
  1. ALLEGRA D [Suspect]
     Indication: HEAD DISCOMFORT
     Route: 048
     Dates: start: 20130530, end: 20130601
  2. ALLEGRA D [Suspect]
     Indication: HEAD DISCOMFORT
     Route: 048
     Dates: start: 20130530, end: 20130601

REACTIONS (3)
  - Insomnia [Not Recovered/Not Resolved]
  - Decreased appetite [Not Recovered/Not Resolved]
  - Therapeutic response decreased [Unknown]
